FAERS Safety Report 4612764-2 (Version None)
Quarter: 2005Q1

REPORT INFORMATION
  Report Type: 
  Country: None (occurrence: None)
  Receive Date: 20050316
  Receipt Date: 20050304
  Transmission Date: 20050727
  Serious: No
  Sender: FDA-Public Use
  Company Number: 212909

PATIENT
  Age: 53 Year
  Sex: Male
  Weight: 80.7 kg

DRUGS (7)
  1. AVASTIN [Suspect]
     Indication: COLON CANCER
     Dosage: 368 MG, Q2W, INTRAVENOUS
     Route: 042
     Dates: start: 20050125, end: 20050307
  2. FLUOROURACIL [Concomitant]
  3. OXALIPLATIN (OXALIPLATIN) [Concomitant]
  4. LEUCOVORIN CALCIUM [Concomitant]
  5. COUMADIN [Concomitant]
  6. FESO4(FERROUS SULFATE) [Concomitant]
  7. ADVIL [Concomitant]

REACTIONS (1)
  - ERYTHEMA MULTIFORME [None]
